FAERS Safety Report 9034449 (Version 1)
Quarter: 2012Q4

REPORT INFORMATION
  Report Type: Spontaneous
  Country: US (occurrence: None)
  Receive Date: 20121206
  Receipt Date: 20121206
  Transmission Date: 20130627
  Serious: Yes (Hospitalization)
  Sender: FDA-Public Use
  Company Number: QR65787-01

PATIENT
  Age: 60 Year
  Sex: Female
  Weight: 65 kg

DRUGS (4)
  1. GAMMAPLEX [Suspect]
     Route: 042
     Dates: start: 20120910
  2. BIO PRODUCTS LABORATORY LIMITED [Suspect]
     Dates: start: 20121010
  3. METHOTREXATE [Concomitant]
  4. RITUXAN [Concomitant]

REACTIONS (3)
  - Meningitis aseptic [None]
  - Meningitis viral [None]
  - Rocky mountain spotted fever [None]
